FAERS Safety Report 4560826-0 (Version None)
Quarter: 2005Q1

REPORT INFORMATION
  Report Type: 
  Country: None (occurrence: None)
  Receive Date: 20050121
  Receipt Date: 20050114
  Transmission Date: 20050727
  Serious: Yes (Death, Hospitalization, Other)
  Sender: FDA-Public Use
  Company Number: TCI2005A00035

PATIENT
  Age: 70 Year
  Sex: Male

DRUGS (10)
  1. ACTOS [Suspect]
     Indication: DIABETES MELLITUS
     Dosage: 30 MG (30 MG, 1 D)
     Route: 048
     Dates: start: 20010101, end: 20041130
  2. NICARDIPINE HYDROCHLORIDE [Concomitant]
  3. METHYLDOPA [Concomitant]
  4. URAPIDIL [Concomitant]
  5. TEMOCAPRIL HYDROCHLORIDE [Concomitant]
  6. BISOPROLOL FUMARATE [Concomitant]
  7. BEZAFIBRATE [Concomitant]
  8. CILOSTAZOL [Concomitant]
  9. TRICHLORMETHIAZIDE [Concomitant]
  10. ANTIPSYCHOTICS [Concomitant]

REACTIONS (10)
  - ATRIAL FIBRILLATION [None]
  - AZOTAEMIA [None]
  - CARDIAC FAILURE [None]
  - DIABETIC NEPHROPATHY [None]
  - NEPHROGENIC ANAEMIA [None]
  - OEDEMA [None]
  - PNEUMONIA [None]
  - RENAL FAILURE ACUTE [None]
  - TACHYCARDIA [None]
  - WEIGHT DECREASED [None]
